FAERS Safety Report 8929418 (Version 1)
Quarter: 2012Q4

REPORT INFORMATION
  Report Type: Spontaneous
  Country: US (occurrence: None)
  Receive Date: 20121119
  Receipt Date: 20121119
  Transmission Date: 20130627
  Serious: Yes (Death)
  Sender: FDA-Public Use
  Company Number: 2012-19611

PATIENT
  Age: 64 Year
  Sex: Male

DRUGS (3)
  1. OMEPRAZOLE [Suspect]
     Indication: GASTROESOPHAGEAL REFLUX DISEASE
  2. CEFTAZIDIME [Suspect]
     Indication: BACTERIAL SEPSIS
  3. DOXYCYCLINE [Suspect]
     Indication: BACTERIAL SEPSIS

REACTIONS (5)
  - Bacterial sepsis [None]
  - Drug ineffective [None]
  - Fatigue [None]
  - Blood blister [None]
  - Vibrio test positive [None]
